FAERS Safety Report 4596379-0 (Version None)
Quarter: 2005Q1

REPORT INFORMATION
  Report Type: 
  Country: None (occurrence: None)
  Receive Date: 20050228
  Receipt Date: 20041220
  Transmission Date: 20050727
  Serious: Yes (Hospitalization)
  Sender: FDA-Public Use
  Company Number: 2004105392

PATIENT
  Age: 66 Year
  Sex: Male

DRUGS (1)
  1. BEXTRA [Suspect]
     Indication: PERIARTHRITIS
     Dosage: ORAL
     Route: 048

REACTIONS (2)
  - BLISTER [None]
  - DRUG ERUPTION [None]
